FAERS Safety Report 9336750 (Version 1)
Quarter: 2013Q2

REPORT INFORMATION
  Report Type: Spontaneous
  Country: DE (occurrence: DE)
  Receive Date: 20130607
  Receipt Date: 20130607
  Transmission Date: 20140414
  Serious: Yes (Congenital Anomaly)
  Sender: FDA-Public Use
  Company Number: GXKR2013DE002026

PATIENT
  Sex: 0

DRUGS (3)
  1. OMEPRAZOL [Suspect]
     Dosage: MATERNAL DOSE: UNKNOWN (GW 6.4 TO GW 10.4)
     Route: 064
  2. FOLIO FORTE [Concomitant]
     Dosage: MATERNAL DOSE: 0.8 [MG/D ] (GW 0 - GW 12)
     Route: 064
     Dates: start: 20110306, end: 20110519
  3. TEPILTA [Concomitant]
     Indication: GASTROOESOPHAGEAL REFLUX DISEASE
     Dosage: MATERNAL DOSE: UNK (GW 6.4 - GW 7.4)
     Route: 064
     Dates: start: 20110421, end: 20110428

REACTIONS (3)
  - Atrial septal defect [Recovered/Resolved]
  - Congenital arteriovenous fistula [Not Recovered/Not Resolved]
  - Hypotonia neonatal [Recovering/Resolving]
